FAERS Safety Report 14820352 (Version 4)
Quarter: 2018Q2

REPORT INFORMATION
  Report Type: Report from Study
  Country: None (occurrence: BE)
  Receive Date: 20180427
  Receipt Date: 20180529
  Transmission Date: 20180711
  Serious: Yes (Hospitalization)
  Sender: FDA-Public Use
  Company Number: BE-ABBVIE-18K-013-2336998-00

PATIENT
  Sex: Male

DRUGS (4)
  1. DUODOPA [Suspect]
     Active Substance: CARBIDOPA\LEVODOPA
     Dosage: MD=2.8ML??CD=BETWEEN 3.5 AND 4 ML/HR DURING 16HRS ??ED=BETWEEN 1 AND 3ML
     Route: 050
     Dates: start: 20180125
  2. DUODOPA [Suspect]
     Active Substance: CARBIDOPA\LEVODOPA
     Dosage: DOSES CONTINUOUSLY MONITORED AND ADAPTED
     Route: 050
     Dates: start: 20150127, end: 20180125
  3. QUETIAPINE. [Concomitant]
     Active Substance: QUETIAPINE
     Indication: PRODUCT USED FOR UNKNOWN INDICATION
  4. DUODOPA [Suspect]
     Active Substance: CARBIDOPA\LEVODOPA
     Indication: PARKINSON^S DISEASE
     Dosage: MD=5ML??CD=3.6ML/HR DURING 16HRS ??ED=2ML
     Route: 050
     Dates: start: 20150126, end: 20150127

REACTIONS (5)
  - Embedded device [Recovered/Resolved]
  - Anaemia [Unknown]
  - Abdominal pain [Unknown]
  - Embedded device [Unknown]
  - Device occlusion [Unknown]
